FAERS Safety Report 12882208 (Version 1)
Quarter: 2016Q4

REPORT INFORMATION
  Report Type: Spontaneous
  Country: GB (occurrence: GB)
  Receive Date: 20161025
  Receipt Date: 20161025
  Transmission Date: 20170207
  Serious: Yes (Death)
  Sender: FDA-Public Use
  Company Number: GB-CELGENEUS-GBR-2016103318

PATIENT
  Sex: Male

DRUGS (1)
  1. REVLIMID [Suspect]
     Active Substance: LENALIDOMIDE
     Indication: HIGH GRADE B-CELL LYMPHOMA BURKITT-LIKE LYMPHOMA
     Dosage: 1 DOSE
     Route: 048
     Dates: start: 20160418, end: 20160418

REACTIONS (1)
  - High grade B-cell lymphoma Burkitt-like lymphoma refractory [Fatal]
